FAERS Safety Report 14526902 (Version 1)
Quarter: 2018Q1

REPORT INFORMATION
  Report Type: Spontaneous
  Country: US (occurrence: US)
  Receive Date: 20180212
  Receipt Date: 20180212
  Transmission Date: 20180509
  Serious: No
  Sender: FDA-Public Use
  Company Number: None

PATIENT
  Age: 75 Year
  Sex: Male
  Weight: 72 kg

DRUGS (2)
  1. DICLOFENAC POT 50MG [Suspect]
     Active Substance: DICLOFENAC POTASSIUM
     Indication: GOUT
     Dosage: ?          QUANTITY:30 TABLET(S);?
     Route: 048
     Dates: start: 20180202, end: 20180208
  2. VITAMINS [Concomitant]
     Active Substance: VITAMINS

REACTIONS (8)
  - Fatigue [None]
  - Constipation [None]
  - Body temperature increased [None]
  - Abdominal pain upper [None]
  - Dyspepsia [None]
  - Frustration tolerance decreased [None]
  - Drug ineffective [None]
  - Anger [None]

NARRATIVE: CASE EVENT DATE: 20180209
